FAERS Safety Report 11311832 (Version 1)
Quarter: 2015Q3

REPORT INFORMATION
  Report Type: Spontaneous
  Country: US (occurrence: None)
  Receive Date: 20150724
  Receipt Date: 20150724
  Transmission Date: 20151125
  Serious: No
  Sender: FDA-Public Use
  Company Number: None

PATIENT
  Age: 76 Year
  Sex: Male

DRUGS (1)
  1. GADOBENATE DIMEGLUMINE [Suspect]
     Active Substance: GADOBENATE DIMEGLUMINE
     Indication: CEREBROVASCULAR ACCIDENT
     Route: 042
     Dates: start: 20150415, end: 20150415

REACTIONS (1)
  - Urticaria [None]

NARRATIVE: CASE EVENT DATE: 20150415
